FAERS Safety Report 15662838 (Version 1)
Quarter: 2018Q4

REPORT INFORMATION
  Report Type: Spontaneous
  Country: US (occurrence: US)
  Receive Date: 20181127
  Receipt Date: 20181127
  Transmission Date: 20190205
  Serious: Yes (Other)
  Sender: FDA-Public Use
  Company Number: US-SA-2018SA176947

PATIENT
  Age: 49 Year
  Sex: Female
  Weight: 68.03 kg

DRUGS (4)
  1. TAXOTERE [Suspect]
     Active Substance: DOCETAXEL
     Dosage: 75 MG/M2, Q3W
     Dates: start: 20120525, end: 20120525
  2. TAXOTERE [Suspect]
     Active Substance: DOCETAXEL
     Dosage: 75 MG/M2, Q3W
     Dates: start: 20120302, end: 20120302
  3. PARAPLATIN [Concomitant]
     Active Substance: CARBOPLATIN
     Dosage: 75 UNK, Q3W
     Dates: start: 20120525, end: 20120525
  4. PARAPLATIN [Concomitant]
     Active Substance: CARBOPLATIN
     Dosage: 75 MG/M2, Q3W
     Dates: start: 20120302, end: 20120302

REACTIONS (1)
  - Alopecia [Recovering/Resolving]

NARRATIVE: CASE EVENT DATE: 20121101
